FAERS Safety Report 6982662-8 (Version None)
Quarter: 2010Q3

REPORT INFORMATION
  Report Type: 
  Country: None (occurrence: None)
  Receive Date: 20100914
  Receipt Date: 20100305
  Transmission Date: 20110219
  Serious: No
  Sender: FDA-Public Use
  Company Number: US-PFIZER INC-2010029077

PATIENT
  Sex: Male
  Weight: 79 kg

DRUGS (1)
  1. LYRICA [Suspect]
     Indication: ARTHRALGIA
     Dosage: 75 MG, DAILY
     Route: 048
     Dates: start: 20100303

REACTIONS (1)
  - PRURITUS GENERALISED [None]
